FAERS Safety Report 16991377 (Version 8)
Quarter: 2021Q2

REPORT INFORMATION
  Report Type: Report from Study
  Country: US (occurrence: US)
  Receive Date: 20191104
  Receipt Date: 20210625
  Transmission Date: 20210716
  Serious: Yes (Hospitalization, Other)
  Sender: FDA-Public Use
  Company Number: US-SHIRE-US201936588

PATIENT
  Age: 38 Year
  Sex: Female
  Weight: 58 kg

DRUGS (27)
  1. TEDUGLUTIDE [Suspect]
     Active Substance: TEDUGLUTIDE
     Dosage: 0.306, PRN
     Route: 058
     Dates: start: 20170612
  2. TEDUGLUTIDE [Suspect]
     Active Substance: TEDUGLUTIDE
     Dosage: 0.306, PRN
     Route: 058
     Dates: start: 20170612
  3. VITAMIN B12 [Concomitant]
     Active Substance: CYANOCOBALAMIN
     Indication: PRODUCT USED FOR UNKNOWN INDICATION
  4. TEDUGLUTIDE [Suspect]
     Active Substance: TEDUGLUTIDE
     Indication: MALABSORPTION
     Dosage: 0306 MILLILITER, 1X/DAY:QD
     Route: 058
     Dates: start: 20170612
  5. TEDUGLUTIDE [Suspect]
     Active Substance: TEDUGLUTIDE
     Indication: MALABSORPTION
     Dosage: 0306 MILLILITER, 1X/DAY:QD
     Route: 058
     Dates: start: 20170612
  6. TEDUGLUTIDE [Suspect]
     Active Substance: TEDUGLUTIDE
     Dosage: 0.306 MILLILITER, 1X/DAY:QD
     Route: 050
     Dates: start: 20170612
  7. TEDUGLUTIDE [Suspect]
     Active Substance: TEDUGLUTIDE
     Dosage: 0.306 MILLILITER, 1X/DAY:QD
     Route: 050
     Dates: start: 20170612
  8. POTASSIUM CHLORIDE. [Concomitant]
     Active Substance: POTASSIUM CHLORIDE
     Indication: PRODUCT USED FOR UNKNOWN INDICATION
  9. NACL [Concomitant]
     Active Substance: SODIUM CHLORIDE
     Indication: PRODUCT USED FOR UNKNOWN INDICATION
  10. TEDUGLUTIDE [Suspect]
     Active Substance: TEDUGLUTIDE
     Dosage: 0.306, PRN
     Route: 058
     Dates: start: 20170612
  11. TEDUGLUTIDE [Suspect]
     Active Substance: TEDUGLUTIDE
     Indication: SHORT-BOWEL SYNDROME
     Dosage: 0.306, 1X/DAY:QD
     Route: 058
     Dates: start: 20170612
  12. TEDUGLUTIDE [Suspect]
     Active Substance: TEDUGLUTIDE
     Dosage: 0.306 MILLILITER, 1X/DAY:QD
     Route: 050
     Dates: start: 20170612
  13. TEDUGLUTIDE [Suspect]
     Active Substance: TEDUGLUTIDE
     Dosage: 3.06 MILLIGRAM
     Route: 058
  14. TEDUGLUTIDE [Suspect]
     Active Substance: TEDUGLUTIDE
     Dosage: 3.06 MILLIGRAM
     Route: 058
  15. TEDUGLUTIDE [Suspect]
     Active Substance: TEDUGLUTIDE
     Dosage: 3.06 MILLIGRAM
     Route: 058
  16. ENTYVIO [Concomitant]
     Active Substance: VEDOLIZUMAB
  17. TEDUGLUTIDE [Suspect]
     Active Substance: TEDUGLUTIDE
     Indication: SHORT-BOWEL SYNDROME
     Dosage: 0.306, 1X/DAY:QD
     Route: 058
     Dates: start: 20170612
  18. TEDUGLUTIDE [Suspect]
     Active Substance: TEDUGLUTIDE
     Indication: SHORT-BOWEL SYNDROME
     Dosage: 0.306, 1X/DAY:QD
     Route: 058
     Dates: start: 20170612
  19. TEDUGLUTIDE [Suspect]
     Active Substance: TEDUGLUTIDE
     Indication: SHORT-BOWEL SYNDROME
     Dosage: 0.306, 1X/DAY:QD
     Route: 058
     Dates: start: 20170612
  20. TEDUGLUTIDE [Suspect]
     Active Substance: TEDUGLUTIDE
     Indication: MALABSORPTION
     Dosage: 0306 MILLILITER, 1X/DAY:QD
     Route: 058
     Dates: start: 20170612
  21. TEDUGLUTIDE [Suspect]
     Active Substance: TEDUGLUTIDE
     Dosage: 0.306 MILLILITER, 1X/DAY:QD
     Route: 050
     Dates: start: 20170612
  22. TEDUGLUTIDE [Suspect]
     Active Substance: TEDUGLUTIDE
     Dosage: 0.306, PRN
     Route: 058
     Dates: start: 20170612
  23. MAGNESIUM [Concomitant]
     Active Substance: MAGNESIUM
     Indication: PRODUCT USED FOR UNKNOWN INDICATION
  24. VITAMIN D3 [Concomitant]
     Active Substance: CHOLECALCIFEROL
     Indication: PRODUCT USED FOR UNKNOWN INDICATION
  25. MAGNESIUM SULFATE. [Concomitant]
     Active Substance: MAGNESIUM SULFATE
     Indication: PRODUCT USED FOR UNKNOWN INDICATION
  26. TEDUGLUTIDE [Suspect]
     Active Substance: TEDUGLUTIDE
     Indication: MALABSORPTION
     Dosage: 0306 MILLILITER, 1X/DAY:QD
     Route: 058
     Dates: start: 20170612
  27. TEDUGLUTIDE [Suspect]
     Active Substance: TEDUGLUTIDE
     Dosage: 3.06 MILLIGRAM
     Route: 058

REACTIONS (6)
  - Hospitalisation [Unknown]
  - Device leakage [Unknown]
  - Dehydration [Recovered/Resolved]
  - Fluid imbalance [Unknown]
  - Weight increased [Unknown]
  - Product dose omission issue [Not Recovered/Not Resolved]

NARRATIVE: CASE EVENT DATE: 20190914
